FAERS Safety Report 8579373-4 (Version None)
Quarter: 2012Q3

REPORT INFORMATION
  Report Type: 
  Country: None (occurrence: None)
  Receive Date: 20120808
  Receipt Date: 20120806
  Transmission Date: 20120928
  Serious: No
  Sender: FDA-Public Use
  Company Number: US-PFIZER INC-2012191944

PATIENT
  Age: 58 Year
  Sex: Female
  Weight: 68 kg

DRUGS (2)
  1. EFFEXOR XR [Suspect]
     Indication: AFFECTIVE DISORDER
  2. EFFEXOR XR [Suspect]
     Indication: ANXIETY
     Dosage: 75 MG, 2X/DAY
     Route: 048
     Dates: end: 20120801

REACTIONS (3)
  - INSOMNIA [None]
  - DIZZINESS [None]
  - DIARRHOEA [None]
